FAERS Safety Report 19426370 (Version 1)
Quarter: 2021Q2

REPORT INFORMATION
  Report Type: Report from Study
  Country: US (occurrence: US)
  Receive Date: 20210616
  Receipt Date: 20210616
  Transmission Date: 20210717
  Serious: Yes (Hospitalization)
  Sender: FDA-Public Use
  Company Number: US-PFIZER INC-2020304752

PATIENT
  Age: 84 Year
  Sex: Male
  Weight: 77.5 kg

DRUGS (4)
  1. ENCORAFENIB [Suspect]
     Active Substance: ENCORAFENIB
     Indication: NON-SMALL CELL LUNG CANCER
     Dosage: 75 MG, ONCE DAILY, CONTINUOUS
     Route: 048
     Dates: start: 20200708, end: 20200805
  2. CARDIAZEM [DILTIAZEM] [Concomitant]
     Indication: ATRIAL FIBRILLATION
     Dosage: CARDIAZEM CD, 300 MG, QHS (EVERY NIGHT)
     Route: 048
     Dates: start: 20180615, end: 20200807
  3. ELIQUIS [Concomitant]
     Active Substance: APIXABAN
     Indication: ATRIAL FIBRILLATION
     Dosage: 5 MG, BID
     Route: 048
     Dates: start: 20180615
  4. BINIMETINIB [Suspect]
     Active Substance: BINIMETINIB
     Indication: NON-SMALL CELL LUNG CANCER
     Dosage: 15 MG, TWICE DAILY, CONTINUOUS
     Route: 048
     Dates: start: 20200708, end: 20200805

REACTIONS (2)
  - Atrial fibrillation [Recovered/Resolved]
  - Condition aggravated [Recovered/Resolved]

NARRATIVE: CASE EVENT DATE: 20200805
